FAERS Safety Report 9201757 (Version 3)
Quarter: 2014Q2

REPORT INFORMATION
  Report Type: Report from Study
  Country: IT (occurrence: IT)
  Receive Date: 20130401
  Receipt Date: 20140405
  Transmission Date: 20141212
  Serious: Yes (Hospitalization)
  Sender: FDA-Public Use
  Company Number: IT-ROCHE-1157703

PATIENT
  Age: 43 Year
  Sex: Male

DRUGS (8)
  1. VEMURAFENIB [Suspect]
     Indication: METASTATIC MALIGNANT MELANOMA
     Route: 048
     Dates: start: 20120618, end: 20121112
  2. VEMURAFENIB [Suspect]
     Route: 048
     Dates: start: 20121130, end: 20130215
  3. VEMURAFENIB [Suspect]
     Route: 048
     Dates: start: 20130305, end: 20130313
  4. VEMURAFENIB [Suspect]
     Route: 048
     Dates: start: 20130415
  5. DEXAMETASON [Concomitant]
     Indication: METASTASES TO CENTRAL NERVOUS SYSTEM
     Route: 048
     Dates: start: 20121026
  6. DEXAMETASON [Concomitant]
     Route: 048
     Dates: start: 20121031
  7. LANSOPRAZOLE [Concomitant]
     Route: 048
     Dates: start: 20120618
  8. FLUCONAZOLE [Concomitant]
     Route: 048
     Dates: start: 20130114

REACTIONS (7)
  - Arthralgia [Recovered/Resolved]
  - Rash [Recovered/Resolved]
  - Neuropathy peripheral [Not Recovered/Not Resolved]
  - Nausea [Recovered/Resolved]
  - Neuropathy peripheral [Not Recovered/Not Resolved]
  - Asthenia [Not Recovered/Not Resolved]
  - Pulmonary embolism [Recovered/Resolved]
